FAERS Safety Report 5248914-7 (Version None)
Quarter: 2007Q1

REPORT INFORMATION
  Report Type: 
  Country: None (occurrence: None)
  Receive Date: 20070228
  Receipt Date: 20070216
  Transmission Date: 20070707
  Serious: Yes (Life-Threatening, Hospitalization)
  Sender: FDA-Public Use
  Company Number: HQWYE944216FEB07

PATIENT
  Age: 94 Year
  Sex: Female

DRUGS (2)
  1. AVLOCARDYL [Suspect]
     Route: 048
     Dates: end: 20070128
  2. PLAVIX [Concomitant]
     Route: 048
     Dates: end: 20070128

REACTIONS (2)
  - ATRIOVENTRICULAR BLOCK COMPLETE [None]
  - BRADYCARDIA [None]
